FAERS Safety Report 7809627-8 (Version None)
Quarter: 2011Q4

REPORT INFORMATION
  Report Type: 
  Country: None (occurrence: None)
  Receive Date: 20111012
  Receipt Date: 20111005
  Transmission Date: 20120403
  Serious: Yes (Hospitalization)
  Sender: FDA-Public Use
  Company Number: US-ACTELION-A-US2011-54192

PATIENT

DRUGS (1)
  1. TRACLEER [Suspect]
     Indication: PULMONARY ARTERIAL HYPERTENSION
     Dosage: UNK
     Route: 048
     Dates: start: 20100330

REACTIONS (4)
  - SPINAL COLUMN STENOSIS [None]
  - BONE NEOPLASM MALIGNANT [None]
  - KNEE ARTHROPLASTY [None]
  - SURGERY [None]
